FAERS Safety Report 24400026 (Version 1)
Quarter: 2024Q4

REPORT INFORMATION
  Report Type: Report from Study
  Country: US (occurrence: US)
  Receive Date: 20241005
  Receipt Date: 20241005
  Transmission Date: 20250115
  Serious: Yes (Hospitalization)
  Sender: ACCORD
  Company Number: US-Accord-448637

PATIENT
  Sex: Female

DRUGS (4)
  1. CLOZAPINE [Suspect]
     Active Substance: CLOZAPINE
     Indication: Product used for unknown indication
     Dosage: 50MG, TWICE DAILY, (MORNING AND AT 6 PM)
     Route: 048
  2. DILANTIN [Concomitant]
     Active Substance: PHENYTOIN
     Indication: Seizure
  3. KEPPRA [Concomitant]
     Active Substance: LEVETIRACETAM
     Indication: Product used for unknown indication
  4. LEVETIRACETAM [Concomitant]
     Active Substance: LEVETIRACETAM
     Indication: Product used for unknown indication

REACTIONS (4)
  - Seizure [Unknown]
  - Psychotic disorder [Unknown]
  - Psychiatric decompensation [Unknown]
  - Treatment noncompliance [Unknown]
